FAERS Safety Report 4865498-3 (Version None)
Quarter: 2005Q4

REPORT INFORMATION
  Report Type: 
  Country: None (occurrence: None)
  Receive Date: 20051220
  Receipt Date: 20051124
  Transmission Date: 20060501
  Serious: Yes (Hospitalization)
  Sender: FDA-Public Use
  Company Number: 215722

PATIENT
  Age: 56 Year
  Sex: Male

DRUGS (1)
  1. AVASTIN [Suspect]
     Indication: METASTATIC RENAL CELL CARCINOMA
     Dosage: 800 MG Q2W INTRAVENOUS
     Route: 042
     Dates: start: 20050125, end: 20050505

REACTIONS (2)
  - PLATELET COUNT INCREASED [None]
  - POLYCYTHAEMIA [None]
